FAERS Safety Report 7044520-2 (Version None)
Quarter: 2010Q4

REPORT INFORMATION
  Report Type: 
  Country: None (occurrence: None)
  Receive Date: 20101013
  Receipt Date: 20101013
  Transmission Date: 20110411
  Serious: Yes (Life-Threatening)
  Sender: FDA-Public Use
  Company Number: None

PATIENT
  Sex: Male
  Weight: 85.3 kg

DRUGS (12)
  1. NPLATE [Suspect]
     Indication: IDIOPATHIC THROMBOCYTOPENIC PURPURA
     Dosage: 850 MCG ONCE WEEKLY SUBCUTANEOUSLY
     Route: 058
     Dates: start: 20100223, end: 20100803
  2. NPLATE [Suspect]
  3. NPLATE [Suspect]
  4. NPLATE [Suspect]
  5. NPLATE [Suspect]
  6. NPLATE [Suspect]
  7. NPLATE [Suspect]
  8. NPLATE [Suspect]
  9. NPLATE [Suspect]
  10. NPLATE [Suspect]
  11. NPLATE [Suspect]
  12. NPLATE [Suspect]

REACTIONS (2)
  - CONVULSION [None]
  - INTRACRANIAL VENOUS SINUS THROMBOSIS [None]
